FAERS Safety Report 4734902-3 (Version None)
Quarter: 2005Q3

REPORT INFORMATION
  Report Type: 
  Country: None (occurrence: None)
  Receive Date: 20050729
  Receipt Date: 20050722
  Transmission Date: 20060218
  Serious: Yes (Other)
  Sender: FDA-Public Use
  Company Number: 2005-07-1739

PATIENT
  Age: 75 Year
  Sex: Male

DRUGS (1)
  1. INTRON A [Suspect]
     Indication: NEOPLASM MALIGNANT

REACTIONS (2)
  - ABNORMAL BEHAVIOUR [None]
  - DEMENTIA ALZHEIMER'S TYPE [None]
